FAERS Safety Report 18795673 (Version 2)
Quarter: 2021Q1

REPORT INFORMATION
  Report Type: Spontaneous
  Country: US (occurrence: US)
  Receive Date: 20210127
  Receipt Date: 20210205
  Transmission Date: 20210419
  Serious: No
  Sender: FDA-Public Use
  Company Number: US-PFIZER INC-2021045790

PATIENT
  Sex: Male

DRUGS (1)
  1. DEPO?TESTOSTERONE [Suspect]
     Active Substance: TESTOSTERONE CYPIONATE
     Dosage: UNK

REACTIONS (5)
  - Physical product label issue [Unknown]
  - Suspected counterfeit product [Unknown]
  - Product odour abnormal [Unknown]
  - Poor quality product administered [Unknown]
  - Therapeutic product effect incomplete [Unknown]
